FAERS Safety Report 23910862 (Version 2)
Quarter: 2025Q1

REPORT INFORMATION
  Report Type: Spontaneous
  Country: US (occurrence: US)
  Receive Date: 20240528
  Receipt Date: 20250227
  Transmission Date: 20250409
  Serious: No
  Sender: AVADEL CNS PHARMACEUTICALS, LLC
  Company Number: US-AVADEL CNS PHARMACEUTICALS, LLC-2024AVA00422

PATIENT
  Age: 42 Year
  Sex: Female

DRUGS (17)
  1. LUMRYZ [Suspect]
     Active Substance: SODIUM OXYBATE
     Indication: Narcolepsy
     Dosage: 9 G, ONCE NIGHTLY
     Route: 048
     Dates: start: 20231121
  2. LUMRYZ [Suspect]
     Active Substance: SODIUM OXYBATE
     Indication: Cataplexy
  3. MAGNESIUM [Concomitant]
     Active Substance: MAGNESIUM
  4. HERBALS\TURMERIC [Concomitant]
     Active Substance: HERBALS\TURMERIC
  5. VITAMIN B12 [Concomitant]
     Active Substance: CYANOCOBALAMIN
  6. ZYRTEC [Concomitant]
     Active Substance: CETIRIZINE HYDROCHLORIDE
  7. VITAMIN C [Concomitant]
     Active Substance: ASCORBIC ACID
  8. VITAMIN D2 [Concomitant]
     Active Substance: ERGOCALCIFEROL
  9. MIRENA [Concomitant]
     Active Substance: LEVONORGESTREL
     Route: 015
  10. TRETINOIN [Concomitant]
     Active Substance: TRETINOIN
  11. ALUMINUM CHLORIDE [Concomitant]
     Active Substance: ALUMINUM CHLORIDE
  12. EPIPEN [Concomitant]
     Active Substance: EPINEPHRINE
  13. DOXYCYCLINE HYCLATE [Concomitant]
     Active Substance: DOXYCYCLINE HYCLATE
  14. TACROLIMUS [Concomitant]
     Active Substance: TACROLIMUS
  15. SPIRONOLACTONE [Concomitant]
     Active Substance: SPIRONOLACTONE
  16. DESVENLAFAXINE SUCCINATE [Concomitant]
     Active Substance: DESVENLAFAXINE SUCCINATE
  17. NEBIVOLOL [Concomitant]
     Active Substance: NEBIVOLOL

REACTIONS (5)
  - Insomnia [Not Recovered/Not Resolved]
  - Decreased interest [Unknown]
  - Poor quality sleep [Not Recovered/Not Resolved]
  - Intentional dose omission [Not Recovered/Not Resolved]
  - Product dose omission issue [Recovered/Resolved]

NARRATIVE: CASE EVENT DATE: 20240301
